FAERS Safety Report 4859164-8 (Version None)
Quarter: 2005Q4

REPORT INFORMATION
  Report Type: 
  Country: None (occurrence: None)
  Receive Date: 20051219
  Receipt Date: 20050922
  Transmission Date: 20060501
  Serious: No
  Sender: FDA-Public Use
  Company Number: US-GLAXOSMITHKLINE-A0575427A

PATIENT
  Age: 48 Year
  Sex: Female

DRUGS (7)
  1. NICODERM CQ [Suspect]
  2. NICODERM CQ [Suspect]
  3. NICODERM CQ [Suspect]
  4. NICODERM CQ [Suspect]
  5. NICODERM CQ [Suspect]
  6. NICODERM CQ [Suspect]
  7. NICORETTE [Suspect]

REACTIONS (7)
  - APPLICATION SITE ERYTHEMA [None]
  - APPLICATION SITE IRRITATION [None]
  - APPLICATION SITE PRURITUS [None]
  - APPLICATION SITE SCAR [None]
  - DERMATITIS CONTACT [None]
  - DRUG INEFFECTIVE [None]
  - THERMAL BURN [None]
